FAERS Safety Report 5326480-5 (Version None)
Quarter: 2007Q2

REPORT INFORMATION
  Report Type: 
  Country: None (occurrence: None)
  Receive Date: 20070516
  Receipt Date: 20070504
  Transmission Date: 20071010
  Serious: Yes (Hospitalization)
  Sender: FDA-Public Use
  Company Number: HQWYE249916JUN06

PATIENT
  Sex: Female

DRUGS (22)
  1. PANTOPRAZOLE SODIUM [Suspect]
     Dosage: 20 MG, FREQUENCY UNKNOWN
     Route: 048
     Dates: start: 20050922, end: 20051115
  2. ALTIM [Suspect]
     Dosage: ^DF^, FREQUENCY UNKNOWN
     Route: 013
     Dates: start: 20050930, end: 20051101
  3. TETRAZEPAM [Suspect]
     Dosage: 50 MG, FREQUENCY UNKNOWN
     Route: 048
     Dates: start: 20051031, end: 20051115
  4. COAPROVEL [Suspect]
     Route: 048
     Dates: start: 20040615, end: 20051214
  5. MOTILIUM [Concomitant]
     Dosage: ^DF^, FREQUENCY UNKNOWN
     Dates: start: 20051116, end: 20051128
  6. VENLAFAXIINE HCL [Concomitant]
     Dosage: UNKNOWN
  7. ANETHOLE [Concomitant]
     Dosage: ^DF^, FREQUENCY UNKNOWN
     Dates: start: 20050601
  8. SELEGILINE HCL [Concomitant]
     Dosage: UNKNOWN
  9. CLONAZEPAM [Concomitant]
     Dosage: UNKNOWN
  10. FUROSEMIDE [Concomitant]
     Dosage: UNKNOWN
  11. DILTIAZEM [Suspect]
     Dosage: UNKNOWN
  12. MACROGOL [Concomitant]
     Dosage: UNKNOWN
  13. PROPOXYPHENE HYDROCHLORIDE [Concomitant]
     Dosage: UNKNOWN
  14. PARACETAMOL [Concomitant]
     Dosage: UNKNOWN
  15. CALSYN [Concomitant]
     Dosage: ^DF^, FREQUENCY UNKNOWN
     Dates: start: 20051116, end: 20051128
  16. LAMALINE [Concomitant]
     Dosage: ^DF^, FREQUENCY UNKNOWN
     Dates: start: 20051116, end: 20051128
  17. HEXABRIX [Concomitant]
     Dosage: ^DF^, FREQUENCY UNKNOWN
     Dates: start: 20051101
  18. MONOCRIXO LP [Suspect]
     Dosage: 100 MG, FREQUENCY UNKNOWN
     Route: 048
     Dates: start: 20051031, end: 20051115
  19. VOLTAREN [Concomitant]
     Dosage: 100 MG, FREQUENCY UNKNOWN
     Dates: start: 20050922, end: 20051006
  20. ENDOTELON [Concomitant]
     Dosage: ^DF^, FREQUENCY UNKNOWN
  21. ACETAMINOPHEN AND TRAMADOL HCL [Suspect]
     Dosage: ^DF^, FREQUENCY UNKNOWN
     Dates: start: 20050922, end: 20051006
  22. SOLU-MEDROL [Suspect]
     Dosage: 40 MG, FREQUENCY UNKNOWN
     Route: 030
     Dates: start: 20051031, end: 20051106

REACTIONS (1)
  - SYSTEMIC LUPUS ERYTHEMATOSUS RASH [None]
